FAERS Safety Report 5131855-3 (Version None)
Quarter: 2006Q4

REPORT INFORMATION
  Report Type: 
  Country: None (occurrence: None)
  Receive Date: 20061016
  Receipt Date: 20061005
  Transmission Date: 20070319
  Serious: Yes (Other)
  Sender: FDA-Public Use
  Company Number: 2006123476

PATIENT
  Sex: Female

DRUGS (3)
  1. LIPITOR [Suspect]
     Indication: BLOOD CHOLESTEROL INCREASED
     Dosage: 80 MG (80 MG, 1 IN 1 D) ORAL
     Route: 048
  2. VITAMINS [Concomitant]
  3. DRUG, UNSPECIFIED [Concomitant]

REACTIONS (1)
  - DEMENTIA ALZHEIMER'S TYPE [None]
